FAERS Safety Report 23704052 (Version 1)
Quarter: 2024Q2

REPORT INFORMATION
  Report Type: Spontaneous
  Country: US (occurrence: US)
  Receive Date: 20240403
  Receipt Date: 20240403
  Transmission Date: 20240716
  Serious: No
  Sender: FDA-Public Use
  Company Number: US-BAUSCHBL-2024BNL003783

PATIENT
  Age: 73 Year
  Sex: Female

DRUGS (2)
  1. VYZULTA [Suspect]
     Active Substance: LATANOPROSTENE BUNOD
     Indication: Open angle glaucoma
     Route: 047
     Dates: start: 2022
  2. VYZULTA [Suspect]
     Active Substance: LATANOPROSTENE BUNOD
     Route: 047
     Dates: start: 2022

REACTIONS (7)
  - Burning sensation [Unknown]
  - Vitreous floaters [Unknown]
  - Headache [Unknown]
  - Eye pain [Unknown]
  - Ocular hyperaemia [Unknown]
  - Product quality issue [Unknown]
  - Expired product administered [Unknown]

NARRATIVE: CASE EVENT DATE: 20240308
